FAERS Safety Report 20853844 (Version 2)
Quarter: 2024Q1

REPORT INFORMATION
  Report Type: Other
  Country: US (occurrence: None)
  Receive Date: 20220520
  Receipt Date: 20240320
  Transmission Date: 20240410
  Serious: Yes (Hospitalization)
  Sender: FDA-Public Use
  Company Number: US-ROCHE-3081282

PATIENT
  Age: 76 Year
  Sex: Female

DRUGS (9)
  1. XOLAIR [Suspect]
     Active Substance: OMALIZUMAB
     Indication: Idiopathic urticaria
     Dosage: STRENGTH: 150MG/ML
     Route: 058
     Dates: start: 20181206
  2. XOLAIR [Suspect]
     Active Substance: OMALIZUMAB
  3. XOLAIR [Suspect]
     Active Substance: OMALIZUMAB
  4. GABAPENTIN [Concomitant]
     Active Substance: GABAPENTIN
  5. LEVEMIR [Concomitant]
     Active Substance: INSULIN DETEMIR
  6. BRIMONIDINE [Concomitant]
     Active Substance: BRIMONIDINE TARTRATE
     Dosage: 0.2%
  7. LATANOPROST [Concomitant]
     Active Substance: LATANOPROST
  8. LOVASTATIN [Concomitant]
     Active Substance: LOVASTATIN
     Dosage: 20 MG
  9. ALBUTEROL SULFATE [Concomitant]
     Active Substance: ALBUTEROL SULFATE

REACTIONS (6)
  - Blood glucose increased [Recovered/Resolved]
  - Urticaria [Not Recovered/Not Resolved]
  - Lip swelling [Not Recovered/Not Resolved]
  - Ear swelling [Not Recovered/Not Resolved]
  - Ill-defined disorder [Unknown]
  - Mass [Unknown]

NARRATIVE: CASE EVENT DATE: 20211023
